FAERS Safety Report 20154216 (Version 2)
Quarter: 2021Q4

REPORT INFORMATION
  Report Type: Spontaneous
  Country: CN (occurrence: CN)
  Receive Date: 20211207
  Receipt Date: 20211223
  Transmission Date: 20220303
  Serious: Yes (Life-Threatening, Other)
  Sender: FDA-Public Use
  Company Number: CN-SA-SAC20211203000952

PATIENT
  Age: 59 Year
  Sex: Female
  Weight: 70 kg

DRUGS (2)
  1. ELOXATIN [Suspect]
     Active Substance: OXALIPLATIN
     Indication: Neoplasm prophylaxis
     Dosage: 200 MG, TOTAL
     Route: 041
     Dates: start: 20211128, end: 20211128
  2. DEXTROSE [Concomitant]
     Active Substance: DEXTROSE
     Indication: Vehicle solution use
     Dosage: 500 ML, TOTAL
     Route: 041
     Dates: start: 20211128, end: 20211128

REACTIONS (5)
  - Nasal obstruction [Recovering/Resolving]
  - Tachypnoea [Recovering/Resolving]
  - Hyperhidrosis [Recovering/Resolving]
  - Hypoaesthesia oral [Recovering/Resolving]
  - Pruritus [Recovering/Resolving]

NARRATIVE: CASE EVENT DATE: 20211128
